FAERS Safety Report 6335819-3 (Version None)
Quarter: 2009Q3

REPORT INFORMATION
  Report Type: 
  Country: None (occurrence: None)
  Receive Date: 20090828
  Receipt Date: 20090824
  Transmission Date: 20100115
  Serious: Yes (Other)
  Sender: FDA-Public Use
  Company Number: 362517

PATIENT
  Age: 18 Year
  Sex: Female

DRUGS (5)
  1. HEPARIN SODIUM [Suspect]
     Indication: HEPATIC VEIN THROMBOSIS
  2. HEPARIN SODIUM [Suspect]
     Indication: SPLENIC VEIN THROMBOSIS
  3. ENOXAPARIN [Suspect]
     Indication: HEPATIC VEIN THROMBOSIS
  4. ENOXAPARIN [Suspect]
     Indication: SPLENIC VEIN THROMBOSIS
  5. ACTIVASE [Concomitant]

REACTIONS (3)
  - HEPARIN-INDUCED THROMBOCYTOPENIA [None]
  - SPLENIC INFARCTION [None]
  - SPLENIC RUPTURE [None]
